FAERS Safety Report 15196494 (Version 1)
Quarter: 2018Q3

REPORT INFORMATION
  Report Type: Spontaneous
  Country: AT (occurrence: AT)
  Receive Date: 20180725
  Receipt Date: 20180725
  Transmission Date: 20181010
  Serious: Yes (Hospitalization)
  Sender: FDA-Public Use
  Company Number: PHHY2018AT054407

PATIENT
  Age: 49 Year
  Sex: Female

DRUGS (1)
  1. OSPEN [Suspect]
     Active Substance: PENICILLIN V
     Indication: INFECTION
     Route: 048

REACTIONS (1)
  - Drug eruption [Recovered/Resolved]

NARRATIVE: CASE EVENT DATE: 20171121
